FAERS Safety Report 6023240-7 (Version None)
Quarter: 2008Q4

REPORT INFORMATION
  Report Type: 
  Country: None (occurrence: None)
  Receive Date: 20081222
  Receipt Date: 20081014
  Transmission Date: 20090506
  Serious: No
  Sender: FDA-Public Use
  Company Number: SPV1-2008-02202

PATIENT
  Age: 5 Year
  Sex: Male
  Weight: 20.4 kg

DRUGS (3)
  1. VYVANSE [Suspect]
     Indication: ATTENTION DEFICIT/HYPERACTIVITY DISORDER
     Dosage: 20 MG, 1X/DAY:QD, ORAL
     Route: 048
     Dates: start: 20080919, end: 20081001
  2. SINGULAIR /01362601/ (MONTELUKAST) [Concomitant]
  3. CORTICOSTEROIDS INHALATION GAS [Concomitant]

REACTIONS (5)
  - ABDOMINAL DISCOMFORT [None]
  - ANOREXIA [None]
  - DYSPNOEA [None]
  - OFF LABEL USE [None]
  - TIC [None]
